FAERS Safety Report 21158033 (Version 1)
Quarter: 2022Q3

REPORT INFORMATION
  Report Type: Spontaneous
  Country: US (occurrence: US)
  Receive Date: 20220801
  Receipt Date: 20220801
  Transmission Date: 20221026
  Serious: No
  Sender: FDA-Public Use
  Company Number: US-KOWA PHARMACEUTICALS-2022KOW00006

PATIENT
  Age: 49 Year
  Sex: Female
  Weight: 52.154 kg

DRUGS (4)
  1. SEGLENTIS [Suspect]
     Active Substance: CELECOXIB\TRAMADOL HYDROCHLORIDE
     Dosage: 2 TABLETS, 2X/DAY
     Dates: start: 20220629, end: 20220630
  2. CARBAMAZEPINE [Concomitant]
     Active Substance: CARBAMAZEPINE
     Dosage: 200 MG, 1X/DAY
  3. ATORVASTATIN [Concomitant]
     Active Substance: ATORVASTATIN
     Dosage: 20 MG, 1X/DAY
  4. TYLENOL [Concomitant]
     Active Substance: ACETAMINOPHEN
     Dosage: 650 MG, AS NEEDED

REACTIONS (4)
  - Abdominal pain upper [Recovered/Resolved]
  - Dizziness [Recovered/Resolved]
  - Headache [Recovered/Resolved]
  - Vomiting [Recovered/Resolved]

NARRATIVE: CASE EVENT DATE: 20220629
